FAERS Safety Report 16195650 (Version 1)
Quarter: 2019Q2

REPORT INFORMATION
  Report Type: Spontaneous
  Country: FR (occurrence: FR)
  Receive Date: 20190415
  Receipt Date: 20190415
  Transmission Date: 20190711
  Serious: Yes (Hospitalization, Other)
  Sender: FDA-Public Use
  Company Number: FR-SA-2019SA098113

PATIENT
  Age: 80 Year
  Sex: Male
  Weight: 80 kg

DRUGS (7)
  1. TAHOR [Concomitant]
     Active Substance: ATORVASTATIN CALCIUM
  2. KARDEGIC [Concomitant]
     Active Substance: ASPIRIN DL-LYSINE
  3. PANTOPRAZOLE [Concomitant]
     Active Substance: PANTOPRAZOLE
  4. AMOXICILLIN SODIUM [Suspect]
     Active Substance: AMOXICILLIN SODIUM
     Indication: INFECTION
     Dosage: 7.5 G, QD
     Route: 048
     Dates: start: 20190226
  5. RIFADINE [Suspect]
     Active Substance: RIFAMPIN
     Indication: INFECTION
     Dosage: 4 DF, QD
     Route: 048
     Dates: start: 20190226, end: 20190313
  6. FINASTERIDE. [Concomitant]
     Active Substance: FINASTERIDE
  7. BISOCE [Concomitant]
     Active Substance: BISOPROLOL

REACTIONS (4)
  - Nausea [Recovered/Resolved]
  - Hepatocellular injury [Recovering/Resolving]
  - Palpitations [Recovered/Resolved]
  - Confusional state [Recovered/Resolved]

NARRATIVE: CASE EVENT DATE: 20190311
